FAERS Safety Report 8391683 (Version 5)
Quarter: 2013Q1

REPORT INFORMATION
  Report Type: Report from Study
  Country: US (occurrence: US)
  Receive Date: 20120206
  Receipt Date: 20130110
  Transmission Date: 20140127
  Serious: Yes (Hospitalization)
  Sender: FDA-Public Use
  Company Number: US-ROCHE-1033347

PATIENT
  Age: 62 Year
  Sex: Female
  Weight: 55 kg

DRUGS (14)
  1. PEG-INTERFERON ALFA 2A [Suspect]
     Indication: HEPATITIS C
     Route: 058
     Dates: start: 20110616
  2. RIBAVIRIN [Suspect]
     Indication: HEPATITIS C
     Route: 048
     Dates: start: 20110616
  3. BLINDED TMC435 [Suspect]
     Indication: HEPATITIS C
     Route: 048
     Dates: start: 20110616, end: 20110908
  4. BUTALBITAL [Concomitant]
  5. ASPIRIN [Concomitant]
     Indication: CEREBROVASCULAR ACCIDENT
     Route: 065
  6. CAFFEINE [Concomitant]
  7. PHENTERMINE [Concomitant]
     Route: 065
  8. BUPROPION SR [Concomitant]
     Indication: DEPRESSION
     Route: 065
  9. PENICILLIN VK [Concomitant]
     Route: 065
  10. XANAX [Concomitant]
  11. HYDROCODONE BITARTRATE [Concomitant]
     Dosage: 7.5/650 MG
     Route: 065
  12. ALPRAZOLAM [Concomitant]
     Route: 065
     Dates: start: 20120114
  13. CLINDAMYCIN [Concomitant]
     Indication: INFECTION
     Route: 048
  14. BACID (UNITED STATES) [Concomitant]
     Route: 048
     Dates: start: 20120114

REACTIONS (3)
  - Pancytopenia [Recovered/Resolved]
  - Viral infection [Recovered/Resolved]
  - Hypoaesthesia [Unknown]
